FAERS Safety Report 15173212 (Version 1)
Quarter: 2018Q3

REPORT INFORMATION
  Report Type: Spontaneous
  Country: CN (occurrence: CN)
  Receive Date: 20180720
  Receipt Date: 20180720
  Transmission Date: 20181010
  Serious: Yes (Other)
  Sender: FDA-Public Use
  Company Number: CN-MYLANLABS-2018M1052549

PATIENT
  Age: 27 Year
  Sex: Female

DRUGS (5)
  1. METHYLPREDNISOLONE. [Concomitant]
     Active Substance: METHYLPREDNISOLONE
     Indication: RHEUMATIC DISORDER
     Dosage: 1 DF, BID
     Route: 048
     Dates: start: 20180630, end: 20180711
  2. MELOXICAM. [Concomitant]
     Active Substance: MELOXICAM
     Indication: RHEUMATIC DISORDER
     Dosage: 1 DF, BID
     Route: 048
     Dates: start: 20180630, end: 20180711
  3. AZELASTINE MYLAN [Suspect]
     Active Substance: AZELASTINE
     Indication: RHINITIS ALLERGIC
     Dosage: ONE PUFF FOR EACH NASAL CAVITY FOR ONE TIME, TWICE A DAY
     Dates: start: 20180630, end: 20180711
  4. HYDROXYCHLOROQUINE SULFATE. [Concomitant]
     Active Substance: HYDROXYCHLOROQUINE SULFATE
     Indication: RHEUMATIC DISORDER
     Dosage: 1 DF, BID
     Route: 048
     Dates: start: 20180630, end: 20180711
  5. AZELASTINE HYDROCHLORIDE. [Concomitant]
     Active Substance: AZELASTINE HYDROCHLORIDE
     Indication: RHINITIS ALLERGIC
     Dosage: 1 DF, BID
     Route: 048
     Dates: start: 20180630, end: 20180708

REACTIONS (1)
  - Measles [Not Recovered/Not Resolved]

NARRATIVE: CASE EVENT DATE: 20180710
